FAERS Safety Report 9222392 (Version 1)
Quarter: 2013Q2

REPORT INFORMATION
  Report Type: Spontaneous
  Country: NL (occurrence: NL)
  Receive Date: 20130410
  Receipt Date: 20130410
  Transmission Date: 20140414
  Serious: Yes (Death, Other)
  Sender: FDA-Public Use
  Company Number: PHHY2013NL034500

PATIENT
  Sex: Male

DRUGS (4)
  1. ZOMETA [Suspect]
     Indication: PROSTATE CANCER METASTATIC
     Dosage: 4 MG/ 100 ML ONCE EVERY 56 DAYS
     Route: 042
  2. ZOMETA [Suspect]
     Dosage: 4 MG/ 100 ML ONCE EVERY 56 DAYS
     Route: 042
     Dates: start: 20110524
  3. ZOMETA [Suspect]
     Dosage: 4 MG/ 100 ML ONCE EVERY 56 DAYS
     Route: 042
     Dates: start: 20121217
  4. ZOMETA [Suspect]
     Dosage: 4 MG/ 100 ML ONCE EVERY 56 DAYS
     Route: 042
     Dates: start: 20130211

REACTIONS (2)
  - Death [Fatal]
  - General physical health deterioration [Unknown]
